FAERS Safety Report 19233806 (Version 1)
Quarter: 2021Q2

REPORT INFORMATION
  Report Type: Spontaneous
  Country: FR (occurrence: FR)
  Receive Date: 20210507
  Receipt Date: 20210507
  Transmission Date: 20210717
  Serious: Yes (Other)
  Sender: FDA-Public Use
  Company Number: FR-BRISTOL-MYERS SQUIBB COMPANY-BMS-2021-043353

PATIENT
  Age: 87 Year
  Sex: Female
  Weight: 105 kg

DRUGS (12)
  1. ZOPICLONE [Suspect]
     Active Substance: ZOPICLONE
     Indication: INSOMNIA
     Dosage: 3.75 MILLIGRAM, DAILY DOSE
     Route: 048
     Dates: start: 20210409
  2. BACTRIM [Suspect]
     Active Substance: SULFAMETHOXAZOLE\TRIMETHOPRIM
     Indication: URINARY TRACT INFECTION
     Dosage: 2 DOSAGE FORM, DAILY DOSE
     Route: 048
     Dates: start: 20210408, end: 20210414
  3. LASILIX [FUROSEMIDE] [Suspect]
     Active Substance: FUROSEMIDE
     Indication: CARDIAC FAILURE
     Dosage: 3 DOASGE FORM, DAILY DOSE
     Route: 042
     Dates: start: 20210410, end: 20210411
  4. IPRATROPIUM BROMIDE\FENOTEROL HYDROBROMIDE [Concomitant]
     Active Substance: FENOTEROL HYDROBROMIDE\IPRATROPIUM BROMIDE
     Indication: PRODUCT USED FOR UNKNOWN INDICATION
     Route: 065
  5. TAMSULOSINE HCL [Suspect]
     Active Substance: TAMSULOSIN HYDROCHLORIDE
     Indication: PRODUCT USED FOR UNKNOWN INDICATION
     Dosage: 0.4 MILLIGRAM, DAILY DOSE
     Route: 048
     Dates: start: 20210409, end: 20210411
  6. CONTRAMAL [Suspect]
     Active Substance: TRAMADOL HYDROCHLORIDE
     Indication: URINARY TRACT INFECTION
     Dosage: 1 DOSAGE FORM, DAILY DOSE
     Route: 048
     Dates: start: 20210404
  7. ELIQUIS [Suspect]
     Active Substance: APIXABAN
     Indication: CEREBROVASCULAR ACCIDENT PROPHYLAXIS
     Dosage: 2 DOASGE FORM, DAILY DOSE
     Route: 048
     Dates: end: 20210415
  8. ADENURIC [Suspect]
     Active Substance: FEBUXOSTAT
     Indication: PRODUCT USED FOR UNKNOWN INDICATION
     Dosage: UNK
     Route: 048
  9. HYDROCHLOROTHIAZIDE. [Suspect]
     Active Substance: HYDROCHLOROTHIAZIDE
     Indication: HYPERTENSION
     Dosage: 25 MILLIGRAM, DAILY DOSE
     Route: 048
     Dates: start: 20210402
  10. FUROSEMIDE. [Suspect]
     Active Substance: FUROSEMIDE
     Indication: CARDIAC FAILURE
     Dosage: 1 DOASAGE FORM, DAILY DOSE
     Route: 048
     Dates: end: 20210415
  11. PYOSTACINE [Suspect]
     Active Substance: PRISTINAMYCIN
     Indication: URINARY TRACT INFECTION
     Dosage: 2 DOSAGE FORM, DAILY DOSE
     Route: 048
     Dates: start: 20210409, end: 20210416
  12. DOLIPRANE [Concomitant]
     Active Substance: ACETAMINOPHEN
     Indication: PRODUCT USED FOR UNKNOWN INDICATION
     Route: 065

REACTIONS (1)
  - Acute kidney injury [Not Recovered/Not Resolved]

NARRATIVE: CASE EVENT DATE: 20210411
